FAERS Safety Report 8130342-8 (Version None)
Quarter: 2012Q1

REPORT INFORMATION
  Report Type: 
  Country: None (occurrence: None)
  Receive Date: 20120210
  Receipt Date: 20120206
  Transmission Date: 20120608
  Serious: Yes (Other)
  Sender: FDA-Public Use
  Company Number: PHEH2012US001417

PATIENT
  Sex: Male
  Weight: 104.31 kg

DRUGS (6)
  1. GILENYA [Suspect]
     Dosage: 0.5 MG, QD
     Route: 048
     Dates: start: 20111215, end: 20120112
  2. CELEXA [Concomitant]
     Dosage: 10 MG, QD
     Route: 048
  3. TRAZODONE HCL [Concomitant]
     Indication: SLEEP DISORDER
     Dosage: 50 MG, QD
  4. CLARITIN [Concomitant]
     Dosage: 10 MG, UNK
  5. NAPROXEN (ALEVE) [Concomitant]
     Dosage: 220 MG, UNK
  6. MULTI-VITAMINS [Concomitant]
     Dosage: UNK UKN, UNK

REACTIONS (2)
  - DIZZINESS [None]
  - MYALGIA [None]
